FAERS Safety Report 6326732-6 (Version None)
Quarter: 2009Q3

REPORT INFORMATION
  Report Type: 
  Country: None (occurrence: None)
  Receive Date: 20090825
  Receipt Date: 20090818
  Transmission Date: 20100115
  Serious: Yes (Other)
  Sender: FDA-Public Use
  Company Number: PHEH2009US08453

PATIENT
  Sex: Female
  Weight: 54.422 kg

DRUGS (9)
  1. RECLAST [Suspect]
     Dosage: 5 MG, ONCE/SINGLE
     Route: 042
     Dates: start: 20090620
  2. BENICAR HCT [Concomitant]
     Dosage: 40MG/12.5MG, UNK
  3. ADVAIR DISKUS 100/50 [Concomitant]
     Dosage: 250/50, UNK
  4. CENTRUM SILVER [Concomitant]
  5. MULTI-VITAMINS [Concomitant]
  6. LIPITOR [Concomitant]
     Dosage: 5 MG, UNK
  7. CORAL CALCIUM (CALCIUM/ERGOCALCIFEROL) [Concomitant]
  8. GLUCOSAMINE [Concomitant]
  9. VITAMIN D [Concomitant]
     Dosage: 1000 IU, UNK

REACTIONS (5)
  - ARTHRALGIA [None]
  - PAIN IN EXTREMITY [None]
  - SCIATICA [None]
  - SENSATION OF HEAVINESS [None]
  - SPINAL COLUMN STENOSIS [None]
